FAERS Safety Report 17481100 (Version 1)
Quarter: 2020Q1

REPORT INFORMATION
  Report Type: Spontaneous
  Country: US (occurrence: US)
  Receive Date: 20200302
  Receipt Date: 20200302
  Transmission Date: 20200409
  Serious: Yes (Other)
  Sender: FDA-Public Use
  Company Number: US-ALVOGEN-2020-ALVOGEN-107702

PATIENT
  Age: 58 Year
  Sex: Female

DRUGS (1)
  1. OXYCODONE [Suspect]
     Active Substance: OXYCODONE
     Indication: CERVICAL VERTEBRAL FRACTURE
     Dosage: TID

REACTIONS (2)
  - Oesophageal obstruction [Unknown]
  - Oesophageal motility disorder [Unknown]
